FAERS Safety Report 4548169-2 (Version None)
Quarter: 2005Q1

REPORT INFORMATION
  Report Type: 
  Country: None (occurrence: None)
  Receive Date: 20050110
  Receipt Date: 20041229
  Transmission Date: 20050727
  Serious: Yes (Hospitalization)
  Sender: FDA-Public Use
  Company Number: 200414928FR

PATIENT
  Age: 78 Year
  Sex: Female

DRUGS (10)
  1. LASILIX 40 MG [Suspect]
     Route: 048
     Dates: start: 20030615
  2. AMAREL [Suspect]
     Route: 048
  3. ATACAND [Suspect]
     Dosage: DOSE UNIT: UNITS
     Route: 048
     Dates: start: 20040615, end: 20040912
  4. GLUCOPHAGE [Suspect]
     Route: 048
     Dates: start: 20000615, end: 20040912
  5. ALDACTONE [Suspect]
     Route: 048
     Dates: start: 20030615, end: 20040912
  6. TAHOR [Concomitant]
     Route: 048
     Dates: start: 20030615
  7. SOPROL [Concomitant]
     Route: 048
     Dates: start: 20020615
  8. ZYLORIC [Concomitant]
     Route: 048
     Dates: start: 20030615
  9. DAFLON [Concomitant]
     Route: 048
     Dates: start: 20010615, end: 20040912
  10. PIASCLEDINE [Concomitant]
     Route: 048
     Dates: start: 20010615, end: 20040912

REACTIONS (9)
  - BLOOD CREATININE INCREASED [None]
  - BLOOD PRESSURE DECREASED [None]
  - BLOOD SODIUM DECREASED [None]
  - BLOOD UREA INCREASED [None]
  - DEHYDRATION [None]
  - DEPRESSED LEVEL OF CONSCIOUSNESS [None]
  - DIARRHOEA [None]
  - HYPOGLYCAEMIA [None]
  - HYPOVOLAEMIA [None]
